FAERS Safety Report 13790539 (Version 6)
Quarter: 2024Q1

REPORT INFORMATION
  Report Type: Spontaneous
  Country: BE (occurrence: BE)
  Receive Date: 20170725
  Receipt Date: 20240325
  Transmission Date: 20240410
  Serious: Yes (Hospitalization, Other)
  Sender: FDA-Public Use
  Company Number: BE-AUROBINDO-AUR-APL-2009-00455

PATIENT
  Age: 13 Year
  Sex: Male
  Weight: 61 kg

DRUGS (22)
  1. METHOTREXATE [Suspect]
     Active Substance: METHOTREXATE
     Indication: Acute lymphocytic leukaemia
     Dosage: 12 MILLIGRAM
     Route: 037
     Dates: start: 20080716
  2. ONDANSETRON [Suspect]
     Active Substance: ONDANSETRON
     Indication: Acute leukaemia
     Dosage: UNK,TWO TIMES A DAY,,MAXIMUM 8 MG
     Route: 065
     Dates: start: 20080714
  3. ONDANSETRON [Suspect]
     Active Substance: ONDANSETRON
     Dosage: 5 MILLIGRAM/SQ. METER, ONCE A DAY (MAXIMUM 8MG 2 ONCE A DAY)
     Route: 065
     Dates: start: 20080714
  4. OMEPRAZOLE [Suspect]
     Active Substance: OMEPRAZOLE
     Indication: Gastrointestinal inflammation
     Dosage: 20 MILLIGRAM, ONCE A DAY
     Route: 048
     Dates: start: 20080620
  5. OMEPRAZOLE [Suspect]
     Active Substance: OMEPRAZOLE
     Dosage: 20 MILLIGRAM, ONCE A DAY
     Route: 048
     Dates: start: 20100620
  6. SULFAMETHOXAZOLE\TRIMETHOPRIM [Suspect]
     Active Substance: SULFAMETHOXAZOLE\TRIMETHOPRIM
     Indication: Product used for unknown indication
     Dosage: 400 MILLIGRAM, ONCE A DAY (TWO TIMES A DAY)
     Route: 048
     Dates: start: 20080603
  7. SULFAMETHOXAZOLE\TRIMETHOPRIM [Suspect]
     Active Substance: SULFAMETHOXAZOLE\TRIMETHOPRIM
     Dosage: 75 MILLIGRAM/SQ. METER, ONCE A DAY
     Route: 042
     Dates: start: 20080716, end: 20080719
  8. CYCLOPHOSPHAMIDE [Suspect]
     Active Substance: CYCLOPHOSPHAMIDE
     Indication: Acute lymphocytic leukaemia
     Dosage: 1000 MILLIGRAM/SQ. METER
     Route: 042
     Dates: start: 20080714, end: 20080714
  9. CYTARABINE [Suspect]
     Active Substance: CYTARABINE
     Indication: Acute lymphocytic leukaemia
     Dosage: UNK UNK,UNK,
     Route: 037
     Dates: start: 20080716, end: 20080716
  10. CYTARABINE [Suspect]
     Active Substance: CYTARABINE
     Dosage: 75 MILLIGRAM/SQ. METER, DAILY
     Route: 042
     Dates: start: 20080716, end: 20080719
  11. CYTARABINE [Suspect]
     Active Substance: CYTARABINE
     Dosage: 75 MILLIGRAM/SQ. METER, DAILY
     Route: 042
     Dates: start: 20080723, end: 20080726
  12. CYTARABINE [Suspect]
     Active Substance: CYTARABINE
     Dosage: 30 MILLIGRAM (INTRAVENOUS 75 MG/M2 (DAYS 3-6 AND DAYS 10-13), INTRATHECAL 30 MG)
     Route: 037
     Dates: start: 20080716, end: 20080716
  13. METHYLPREDNISOLONE [Suspect]
     Active Substance: METHYLPREDNISOLONE
     Indication: Acute lymphocytic leukaemia
     Dosage: 3 MILLIGRAM
     Route: 037
     Dates: start: 20080716, end: 20080716
  14. OMEPRAZOLE [Suspect]
     Active Substance: OMEPRAZOLE
     Indication: Product used for unknown indication
     Dosage: 20 MILLIGRAM, ONCE A DAY
     Route: 048
     Dates: start: 20080307, end: 20080727
  15. THIOGUANINE [Suspect]
     Active Substance: THIOGUANINE
     Indication: Acute lymphocytic leukaemia
     Dosage: 60 MILLIGRAM/SQ. METER, ONCE A DAY
     Route: 048
     Dates: start: 20080714
  16. MESNA [Suspect]
     Active Substance: MESNA
     Indication: Product used for unknown indication
     Dosage: 1000 MILLIGRAM/SQ. METER
     Route: 042
     Dates: start: 20080714
  17. VINCRISTINE [Concomitant]
     Active Substance: VINCRISTINE
     Indication: Product used for unknown indication
     Dosage: 1.5 MILLIGRAM/SQ. METER
     Route: 048
     Dates: start: 20100701
  18. ADRIAMYCIN [Concomitant]
     Active Substance: DOXORUBICIN HYDROCHLORIDE
     Indication: Acute lymphocytic leukaemia
     Dosage: 30 MILLIGRAM/SQ. METER
     Route: 048
  19. DEXAMETHASONE [Concomitant]
     Active Substance: DEXAMETHASONE
     Indication: Product used for unknown indication
     Dosage: 6 MILLIGRAM/SQ. METER, ONCE A DAY
     Route: 048
     Dates: start: 20080602
  20. DEXAMETHASONE [Concomitant]
     Active Substance: DEXAMETHASONE
     Dosage: UNK
     Route: 065
     Dates: start: 20100602
  21. ASPARAGINASE [Concomitant]
     Active Substance: ASPARAGINASE
     Indication: Acute lymphocytic leukaemia
     Dosage: 20.000 U/M2
     Route: 048
     Dates: start: 20080620
  22. ERWINASE [Concomitant]
     Active Substance: ASPARAGINASE ERWINIA CHRYSANTHEMI
     Indication: Product used for unknown indication
     Dosage: UNK
     Route: 065
     Dates: start: 20100620

REACTIONS (5)
  - Facial paralysis [Recovered/Resolved]
  - Hemiparesis [Recovered/Resolved]
  - Dysarthria [Recovered/Resolved]
  - Stomatitis [Unknown]
  - Facial paresis [Recovered/Resolved]

NARRATIVE: CASE EVENT DATE: 20080727
